FAERS Safety Report 5298537-9 (Version None)
Quarter: 2007Q2

REPORT INFORMATION
  Report Type: 
  Country: None (occurrence: None)
  Receive Date: 20070409
  Receipt Date: 20070327
  Transmission Date: 20071010
  Serious: Yes (Hospitalization)
  Sender: FDA-Public Use
  Company Number: T200601348

PATIENT
  Age: 56 Year
  Sex: Female

DRUGS (15)
  1. LORTAB [Suspect]
     Dates: start: 20050829
  2. FENTANYL CITRATE [Suspect]
     Indication: BREAKTHROUGH PAIN
     Dosage: 600 UG, PRN BUCCAL
     Route: 002
     Dates: start: 20050923, end: 20060619
  3. FENTANYL CITRATE [Suspect]
     Indication: BREAKTHROUGH PAIN
     Dosage: 400 UG, PRN BUCCAL
     Route: 002
     Dates: start: 20060620, end: 20060720
  4. OXYCONTIN [Suspect]
     Dosage: 160 MG, QD, ORAL
     Route: 048
     Dates: start: 20040101
  5. LEXAPRO [Suspect]
     Indication: DEPRESSION
     Dosage: 10 MG, QD, ORAL
     Route: 048
     Dates: start: 20051028
  6. ACETAMINOPHEN [Suspect]
  7. FLEXERIL [Suspect]
  8. SEROQUEL [Concomitant]
  9. ALBUTEROL [Concomitant]
  10. ASPIRIN [Concomitant]
  11. NEXIUM [Concomitant]
  12. SYNTHROID [Concomitant]
  13. LYRICA [Concomitant]
  14. COMBIVENT  (IPRATROPIUM BROMIDE, SALBUTAMOL) [Concomitant]
  15. ZITHROMAX [Concomitant]

REACTIONS (15)
  - ANGIOPATHY [None]
  - CARDIAC FAILURE CONGESTIVE [None]
  - DELUSION [None]
  - DRUG SCREEN POSITIVE [None]
  - ELECTROCARDIOGRAM ST-T CHANGE [None]
  - HALLUCINATION [None]
  - LETHARGY [None]
  - MULTIPLE DRUG OVERDOSE [None]
  - PARANOIA [None]
  - PERICARDIAL EFFUSION [None]
  - PLEURAL EFFUSION [None]
  - SELF-MEDICATION [None]
  - SINUS TACHYCARDIA [None]
  - TREATMENT NONCOMPLIANCE [None]
  - WHITE BLOOD CELL COUNT INCREASED [None]
